FAERS Safety Report 16746576 (Version 3)
Quarter: 2022Q2

REPORT INFORMATION
  Report Type: Spontaneous
  Country: CA (occurrence: CA)
  Receive Date: 20190827
  Receipt Date: 20220418
  Transmission Date: 20220721
  Serious: Yes (Hospitalization)
  Sender: FDA-Public Use
  Company Number: CA-PFIZER INC-2019363105

PATIENT
  Age: 60 Year
  Sex: Female

DRUGS (7)
  1. GEMCITABINE HYDROCHLORIDE [Suspect]
     Active Substance: GEMCITABINE HYDROCHLORIDE
     Indication: Pancreatic carcinoma
     Dosage: 1558 MG, 3 EVERY 28 DAYS
     Route: 042
  2. ABRAXANE [Suspect]
     Active Substance: PACLITAXEL
     Indication: Pancreatic carcinoma
     Dosage: 195 MG, UNK [3 EVERY 28 DAY(S)]
     Route: 042
  3. ABRAXANE [Suspect]
     Active Substance: PACLITAXEL
     Dosage: 195 MG, CYCLIC,  [3 EVERY 28 DAY(S)]
     Route: 042
  4. DURVALUMAB [Suspect]
     Active Substance: DURVALUMAB
     Indication: Pancreatic carcinoma
     Dosage: 1500 MG, UNK [1 EVERY 4 WEEK(S)]
     Route: 042
  5. DURVALUMAB [Suspect]
     Active Substance: DURVALUMAB
     Dosage: 1500 MG, CYCLIC  [1 EVERY 4 WEEK(S)]
     Route: 042
  6. TREMELIMUMAB [Suspect]
     Active Substance: TREMELIMUMAB
     Indication: Pancreatic carcinoma
     Dosage: 75 MG, UNK [1 EVERY 4 WEEK(S)]
     Route: 042
  7. METHYLPREDNISOLONE [Concomitant]
     Active Substance: METHYLPREDNISOLONE
     Dosage: UNK
     Route: 065

REACTIONS (1)
  - Bile duct stenosis [Not Recovered/Not Resolved]
